FAERS Safety Report 9508455 (Version 1)
Quarter: 2013Q1

REPORT INFORMATION
  Report Type: Spontaneous
  Country: US (occurrence: None)
  Receive Date: 20130305
  Receipt Date: 20130305
  Transmission Date: 20140127
  Serious: Yes (Other)
  Sender: FDA-Public Use
  Company Number: 163-21880-10123135

PATIENT
  Age: 71 Year
  Sex: Male

DRUGS (16)
  1. REVLIMID (LENALIDOMIDE) (CAPSULES) [Suspect]
     Indication: NEUROENDOCRINE TUMOUR
     Dosage: CAPSULE, 10 MG, 21 IN 21 D, PO
     Dates: start: 20101027, end: 20110419
  2. SANDOSTATIN LAR (OCTREOTIDE) [Concomitant]
  3. AMLODIPINE BESYLATE [Concomitant]
  4. ANDROGEL (TESTOSTERONE) [Concomitant]
  5. ASPIRIN (ACETYLSALICYLIC ACID) [Concomitant]
  6. BAKING SODA MOUTHWASH (SODIUM BICARBONATE) [Concomitant]
  7. COREG (CARVEDILOL) [Concomitant]
  8. CRESTOR (ROSUVASTATIN) [Concomitant]
  9. DIOVAN (VALSARTAN) [Concomitant]
  10. FEXOFENADINE HCL (FEXOFENADINE HYDROCHLORIDE) [Concomitant]
  11. GLYBURIDE (GLIBENCLAMIDE) [Concomitant]
  12. LEVEMIR (INSULIN DETEMIR) [Concomitant]
  13. L-THYROXINE (LEVOTHYROXINE) [Concomitant]
  14. NYSTATIN [Concomitant]
  15. TRICOR (FENOFIBRATE) [Concomitant]
  16. ZINC [Concomitant]

REACTIONS (4)
  - Renal failure [None]
  - Fatigue [None]
  - Rash [None]
  - Fungal infection [None]
